FAERS Safety Report 10173472 (Version 1)
Quarter: 2014Q2

REPORT INFORMATION
  Report Type: Spontaneous
  Country: US (occurrence: None)
  Receive Date: 20140514
  Receipt Date: 20140514
  Transmission Date: 20141212
  Serious: Yes (Hospitalization)
  Sender: FDA-Public Use
  Company Number: None

PATIENT
  Age: 81 Year
  Sex: Female

DRUGS (2)
  1. ACETAMINOPHEN-CODEINE PHOSPHATE [Suspect]
     Indication: PAIN
     Route: 048
     Dates: end: 20140330
  2. ACETAMINOPHEN-CODEINE PHOSPHATE [Concomitant]

REACTIONS (2)
  - Unresponsive to stimuli [None]
  - Heart rate decreased [None]
